FAERS Safety Report 8420781-X (Version None)
Quarter: 2012Q2

REPORT INFORMATION
  Report Type: 
  Country: None (occurrence: None)
  Receive Date: 20120608
  Receipt Date: 20120604
  Transmission Date: 20120825
  Serious: No
  Sender: FDA-Public Use
  Company Number: US-PFIZER INC-2012109192

PATIENT
  Sex: Female
  Weight: 58.957 kg

DRUGS (3)
  1. IBUPROFEN (ADVIL) [Suspect]
     Indication: HEADACHE
     Dosage: TWO TABLETS, AS NEEDED
     Route: 048
  2. IBUPROFEN (ADVIL) [Suspect]
     Dosage: UNK
     Route: 048
  3. IBUPROFEN (ADVIL) [Suspect]
     Dosage: TWO TABLETS, AS NEEDED
     Route: 048
     Dates: end: 20120503

REACTIONS (6)
  - FEELING ABNORMAL [None]
  - HEADACHE [None]
  - MALAISE [None]
  - WEIGHT INCREASED [None]
  - TENSION [None]
  - DYSPNOEA [None]
